FAERS Safety Report 20820650 (Version 1)
Quarter: 2022Q2

REPORT INFORMATION
  Report Type: Spontaneous
  Country: ZA (occurrence: ZA)
  Receive Date: 20220512
  Receipt Date: 20220512
  Transmission Date: 20220721
  Serious: Yes (Other)
  Sender: FDA-Public Use
  Company Number: ZA-LUPIN PHARMACEUTICALS INC.-2022-06772

PATIENT
  Age: 5 Year
  Sex: Male

DRUGS (1)
  1. LAMIVUDINE [Suspect]
     Active Substance: LAMIVUDINE
     Indication: Chronic hepatitis B
     Dosage: 100 MG, QD
     Route: 048

REACTIONS (1)
  - Drug resistance [Unknown]
